FAERS Safety Report 24293369 (Version 1)
Quarter: 2024Q3

REPORT INFORMATION
  Report Type: Spontaneous
  Country: US (occurrence: None)
  Receive Date: 20240906
  Receipt Date: 20240906
  Transmission Date: 20241017
  Serious: No
  Sender: DOMPE FARMACEUTICI
  Company Number: US-FARMAPROD-202401-0077

PATIENT
  Age: 50 Year
  Sex: Male

DRUGS (11)
  1. OXERVATE [Suspect]
     Active Substance: CENEGERMIN-BKBJ
     Indication: Neurotrophic keratopathy
     Route: 047
     Dates: start: 20231130, end: 20240202
  2. OXERVATE [Suspect]
     Active Substance: CENEGERMIN-BKBJ
  3. REFRESH CLASSIC [Concomitant]
     Active Substance: POLYVINYL ALCOHOL\POVIDONE
  4. SYSTANE (HYPROMELLOSE 2910 (4000 MPA.S)) [Concomitant]
     Active Substance: HYPROMELLOSE 2910 (4000 MPA.S)
     Dosage: 0.3 %-0.4% DROPERETTE
  5. DUREZOL [Concomitant]
     Active Substance: DIFLUPREDNATE
  6. OFLOXACIN [Concomitant]
     Active Substance: OFLOXACIN
  7. BRIMONIDINE/DORZOLAMIDE [Concomitant]
  8. DORZOLAMIDE [Concomitant]
     Active Substance: DORZOLAMIDE
  9. BACITRACIN [Concomitant]
     Active Substance: BACITRACIN
  10. DOXYCYCLINE HYCLATE [Concomitant]
     Active Substance: DOXYCYCLINE HYCLATE
  11. DIAMOX SEQUELS [Concomitant]
     Active Substance: ACETAZOLAMIDE

REACTIONS (7)
  - Eye pain [Not Recovered/Not Resolved]
  - Ocular discomfort [Unknown]
  - Eye irritation [Unknown]
  - Drug ineffective [Unknown]
  - Vision blurred [Unknown]
  - Condition aggravated [Unknown]
  - Product dose omission issue [Unknown]

NARRATIVE: CASE EVENT DATE: 20231201
